FAERS Safety Report 16398978 (Version 2)
Quarter: 2019Q3

REPORT INFORMATION
  Report Type: Report from Study
  Country: JP (occurrence: JP)
  Receive Date: 20190606
  Receipt Date: 20190905
  Transmission Date: 20191004
  Serious: Yes (Death)
  Sender: FDA-Public Use
  Company Number: JP-UCBSA-2019023484

PATIENT
  Age: 89 Year
  Sex: Female
  Weight: 36.1 kg

DRUGS (15)
  1. LACOSAMIDE. [Suspect]
     Active Substance: LACOSAMIDE
     Indication: FOCAL DYSCOGNITIVE SEIZURES
  2. E KEPPRA [Concomitant]
     Active Substance: LEVETIRACETAM
     Indication: SIMPLE PARTIAL SEIZURES
     Dosage: 1000 MG DAILY
     Route: 041
     Dates: end: 20171120
  3. E KEPPRA [Concomitant]
     Active Substance: LEVETIRACETAM
     Indication: PARTIAL SEIZURES WITH SECONDARY GENERALISATION
  4. NOBELBAR [Concomitant]
     Active Substance: PHENOBARBITAL SODIUM
     Indication: PARTIAL SEIZURES WITH SECONDARY GENERALISATION
  5. E KEPPRA [Concomitant]
     Active Substance: LEVETIRACETAM
     Indication: PARTIAL SEIZURES WITH SECONDARY GENERALISATION
  6. E KEPPRA [Concomitant]
     Active Substance: LEVETIRACETAM
     Indication: SIMPLE PARTIAL SEIZURES
     Dosage: 2000 MG PER DAY
     Route: 048
     Dates: end: 20181112
  7. FOSTOIN [Concomitant]
     Active Substance: FOSPHENYTOIN SODIUM
     Indication: SIMPLE PARTIAL SEIZURES
     Dosage: 750 MG PER DAY
     Route: 042
     Dates: end: 20171116
  8. NOBELBAR [Concomitant]
     Active Substance: PHENOBARBITAL SODIUM
     Indication: SIMPLE PARTIAL SEIZURES
     Dosage: 625 MG PER DAY
     Route: 042
     Dates: end: 20171124
  9. NOBELBAR [Concomitant]
     Active Substance: PHENOBARBITAL SODIUM
     Indication: FOCAL DYSCOGNITIVE SEIZURES
     Route: 042
     Dates: end: 20171124
  10. E KEPPRA [Concomitant]
     Active Substance: LEVETIRACETAM
     Indication: FOCAL DYSCOGNITIVE SEIZURES
  11. FOSTOIN [Concomitant]
     Active Substance: FOSPHENYTOIN SODIUM
     Indication: FOCAL DYSCOGNITIVE SEIZURES
     Dosage: 250 MILLIGRAM PER DAY
     Route: 042
     Dates: end: 20171122
  12. FOSTOIN [Concomitant]
     Active Substance: FOSPHENYTOIN SODIUM
     Indication: PARTIAL SEIZURES WITH SECONDARY GENERALISATION
  13. LACOSAMIDE. [Suspect]
     Active Substance: LACOSAMIDE
     Indication: SIMPLE PARTIAL SEIZURES
     Dosage: 50 MILLIGRAM, 2X/DAY (BID)
     Route: 048
     Dates: end: 20181112
  14. LACOSAMIDE. [Suspect]
     Active Substance: LACOSAMIDE
     Indication: PARTIAL SEIZURES WITH SECONDARY GENERALISATION
  15. E KEPPRA [Concomitant]
     Active Substance: LEVETIRACETAM
     Indication: FOCAL DYSCOGNITIVE SEIZURES

REACTIONS (1)
  - Pneumonia [Fatal]
